FAERS Safety Report 13874391 (Version 1)
Quarter: 2017Q3

REPORT INFORMATION
  Report Type: Spontaneous
  Country: US (occurrence: US)
  Receive Date: 20170816
  Receipt Date: 20170816
  Transmission Date: 20171127
  Serious: No
  Sender: FDA-Public Use
  Company Number: US-ROCHE-1065397

PATIENT
  Sex: Female
  Weight: 61.29 kg

DRUGS (2)
  1. AVASTIN [Suspect]
     Active Substance: BEVACIZUMAB
     Indication: PRODUCT USED FOR UNKNOWN INDICATION
     Route: 031
     Dates: end: 200906
  2. LUCENTIS [Suspect]
     Active Substance: RANIBIZUMAB
     Indication: MACULAR DEGENERATION
     Dosage: DATE OF MOST RECENT DOSE: 5/JUN/2012
     Route: 050
     Dates: start: 20100413

REACTIONS (2)
  - Weight increased [Not Recovered/Not Resolved]
  - Musculoskeletal pain [Unknown]
